FAERS Safety Report 5867556-3 (Version None)
Quarter: 2008Q3

REPORT INFORMATION
  Report Type: 
  Country: None (occurrence: None)
  Receive Date: 20080902
  Receipt Date: 20071003
  Transmission Date: 20090109
  Serious: No
  Sender: FDA-Public Use
  Company Number: US-ABBOTT-07P-163-0420075-00

PATIENT
  Sex: Male
  Weight: 80.812 kg

DRUGS (2)
  1. DEPAKOTE ER [Suspect]
     Indication: CONVULSION
     Route: 048
     Dates: start: 20070101
  2. ALPRAZOLAM [Concomitant]
     Indication: STRESS
     Route: 048

REACTIONS (1)
  - MEDICATION RESIDUE [None]
